FAERS Safety Report 8331618 (Version 3)
Quarter: 2014Q2

REPORT INFORMATION
  Report Type: Spontaneous
  Country: NL (occurrence: NL)
  Receive Date: 20120111
  Receipt Date: 20131017
  Transmission Date: 20141212
  Serious: Yes (Other)
  Sender: FDA-Public Use
  Company Number: NL-PFIZER INC-2012003062

PATIENT
  Age: 55 Year
  Sex: Female
  Weight: 73 kg

DRUGS (10)
  1. HYDROCORTISONE SODIUM SUCCINATE [Suspect]
     Indication: HYPOPITUITARISM
     Dosage: 10 MG, 1X/DAY
     Dates: start: 20020518
  2. CALCICHEW-D3 [Suspect]
     Indication: OSTEOPOROSIS
     Dosage: 1 DF, 1X/DAY
     Dates: start: 20051128
  3. NORDITROPIN [Concomitant]
     Dosage: UNK
     Dates: start: 19960509
  4. THYRAX [Concomitant]
     Dosage: 0.1 MG, 1X/DAY
     Dates: start: 19960509
  5. THYRAX [Concomitant]
     Dosage: 0.025 MG, 1X/DAY
     Dates: start: 20020402
  6. OMEPRAZOL [Concomitant]
     Dosage: 20 MG, AS NEEDED
     Dates: start: 20091207
  7. CALCICHEW [Concomitant]
     Dosage: 1000 MG, 1X/DAY
     Dates: start: 20040226, end: 20050613
  8. FOSAMAX [Concomitant]
     Dosage: 70 MG, WEEKLY
     Dates: start: 20030523, end: 20080901
  9. SALBUTAMOL [Concomitant]
     Dosage: UNK
     Dates: start: 19971113, end: 20111021
  10. PENTASA ^FERRING^ [Concomitant]
     Dosage: UNK
     Dates: start: 20090420, end: 20101222

REACTIONS (1)
  - Teeth brittle [Not Recovered/Not Resolved]
